FAERS Safety Report 13515447 (Version 1)
Quarter: 2017Q2

REPORT INFORMATION
  Report Type: Spontaneous
  Country: US (occurrence: US)
  Receive Date: 20170504
  Receipt Date: 20170504
  Transmission Date: 20170830
  Serious: No
  Sender: FDA-Public Use
  Company Number: US-B.I. PHARMACEUTICALS,INC./RIDGEFIELD-2017-BI-024123

PATIENT
  Sex: Female

DRUGS (2)
  1. PROPANOLOL [Concomitant]
     Active Substance: PROPRANOLOL HYDROCHLORIDE
     Indication: HEART RATE IRREGULAR
     Dosage: ONE CAPLET QID;  FORM STRENGTH: 40MG; FORMULATION: CAPLET
     Route: 048
  2. COMBIVENT [Suspect]
     Active Substance: ALBUTEROL SULFATE\IPRATROPIUM BROMIDE
     Indication: PRODUCT USED FOR UNKNOWN INDICATION
     Dosage: 2 PUFFS EVERY 4 HOURS;  FORM STRENGTH: 20 MCG / 100 MCG; FORMULATION: INHALATION SPRAY? ADMINISTRATI
     Route: 055
     Dates: start: 2011

REACTIONS (6)
  - Ligament sprain [Unknown]
  - Movement disorder [Unknown]
  - Fall [Unknown]
  - Incorrect drug administration duration [Unknown]
  - Nerve injury [Unknown]
  - Extremity necrosis [Unknown]

NARRATIVE: CASE EVENT DATE: 2014
